FAERS Safety Report 9185254 (Version 1)
Quarter: 2013Q1

REPORT INFORMATION
  Report Type: Spontaneous
  Country: CA (occurrence: CA)
  Receive Date: 20130325
  Receipt Date: 20130325
  Transmission Date: 20140127
  Serious: Yes (Death, Hospitalization)
  Sender: FDA-Public Use
  Company Number: PHHY2013CA027482

PATIENT
  Age: 62 Year
  Sex: Female

DRUGS (3)
  1. DEXAMETHASONE SANDOZ [Suspect]
     Indication: PREMEDICATION
     Dosage: 10 MG, UNK
     Route: 042
  2. PACLITAXEL [Suspect]
     Indication: BREAST CANCER
     Dosage: 80 MG/M2, UNK
     Dates: start: 20070401
  3. TRASTUZUMAB [Suspect]
     Indication: BREAST CANCER
     Dosage: 2 MG/KG, UNK
     Dates: start: 20070401

REACTIONS (9)
  - Pneumocystis jirovecii pneumonia [Fatal]
  - Fatigue [Fatal]
  - Cough [Fatal]
  - Oxygen saturation decreased [Fatal]
  - Rales [Fatal]
  - General physical health deterioration [Fatal]
  - Bronchiectasis [Unknown]
  - Fibrosis [Unknown]
  - Lymphopenia [Unknown]
